FAERS Safety Report 6822265-9 (Version None)
Quarter: 2010Q3

REPORT INFORMATION
  Report Type: 
  Country: None (occurrence: None)
  Receive Date: 20100707
  Receipt Date: 20100707
  Transmission Date: 20110219
  Serious: No
  Sender: FDA-Public Use
  Company Number: None

PATIENT
  Sex: Female

DRUGS (1)
  1. LYRICA [Suspect]
     Indication: HERPES ZOSTER
     Dosage: 50 MG TID PO
     Route: 048
     Dates: start: 20100413

REACTIONS (7)
  - DYSARTHRIA [None]
  - FALL [None]
  - FEAR [None]
  - MUSCULAR WEAKNESS [None]
  - NERVOUSNESS [None]
  - NIGHTMARE [None]
  - VISION BLURRED [None]
